FAERS Safety Report 25735853 (Version 1)
Quarter: 2025Q3

REPORT INFORMATION
  Report Type: Spontaneous
  Country: US (occurrence: US)
  Receive Date: 20250828
  Receipt Date: 20250828
  Transmission Date: 20251020
  Serious: No
  Sender: IPSEN BIOPHARMACEUTICALS, INC.
  Company Number: US-IPSEN Group, Research and Development-2025-20642

PATIENT
  Sex: Female

DRUGS (19)
  1. IQIRVO [Suspect]
     Active Substance: ELAFIBRANOR
     Indication: Primary biliary cholangitis
     Route: 048
  2. IPRATROPIUM BROMIDE [Concomitant]
     Active Substance: IPRATROPIUM BROMIDE
  3. METOPROLOL SUCCINATE [Concomitant]
     Active Substance: METOPROLOL SUCCINATE
  4. OMEPRAZOLE [Concomitant]
     Active Substance: OMEPRAZOLE
  5. ONDANSETRON HYDROCHLORIDE [Concomitant]
     Active Substance: ONDANSETRON HYDROCHLORIDE
  6. RESTASIS [Concomitant]
     Active Substance: CYCLOSPORINE
  7. HYALURONATE SODIUM [Concomitant]
     Active Substance: HYALURONATE SODIUM
  8. RESTORIL [Concomitant]
     Active Substance: TEMAZEPAM
  9. VITAMIN D3 [Concomitant]
     Active Substance: CHOLECALCIFEROL
  10. ANACIN (ACETAMINOPHEN\ASPIRIN\CAFFEINE) [Concomitant]
     Active Substance: ACETAMINOPHEN\ASPIRIN\CAFFEINE
  11. VITAMIN C [Concomitant]
     Active Substance: ASCORBIC ACID
  12. CVS MAGNESIUM OXIDE [Concomitant]
  13. BACLOFEN [Concomitant]
     Active Substance: BACLOFEN
  14. FIORICET [Concomitant]
     Active Substance: ACETAMINOPHEN\BUTALBITAL\CAFFEINE
  15. CALCIUM GLUCONATE [Concomitant]
     Active Substance: CALCIUM GLUCONATE
  16. ESTRADIOL [Concomitant]
     Active Substance: ESTRADIOL
  17. REPATHA [Concomitant]
     Active Substance: EVOLOCUMAB
  18. FLUTICASONE PROPIONATE [Concomitant]
     Active Substance: FLUTICASONE PROPIONATE
  19. IBUPROFEN [Concomitant]
     Active Substance: IBUPROFEN

REACTIONS (1)
  - Diarrhoea [Unknown]
